FAERS Safety Report 25999031 (Version 1)
Quarter: 2025Q4

REPORT INFORMATION
  Report Type: Spontaneous
  Country: GB (occurrence: GB)
  Receive Date: 20251105
  Receipt Date: 20251105
  Transmission Date: 20260117
  Serious: Yes (Hospitalization, Other)
  Sender: AMGEN
  Company Number: GB-UCBSA-2025067593

PATIENT
  Age: 54 Year
  Sex: Female

DRUGS (1)
  1. EVENITY [Suspect]
     Active Substance: ROMOSOZUMAB-AQQG
     Indication: Osteoporosis
     Dosage: UNK (SOLUTION FOR INJECTION)
     Route: 065

REACTIONS (1)
  - Sinus node dysfunction [Not Recovered/Not Resolved]
